FAERS Safety Report 16796675 (Version 1)
Quarter: 2019Q3

REPORT INFORMATION
  Report Type: Spontaneous
  Country: IN (occurrence: IN)
  Receive Date: 20190911
  Receipt Date: 20190911
  Transmission Date: 20191005
  Serious: Yes (Other)
  Sender: FDA-Public Use
  Company Number: IN-ALLERGAN-1935736US

PATIENT
  Sex: Male

DRUGS (3)
  1. OZURDEX [Suspect]
     Active Substance: DEXAMETHASONE
     Dosage: 0.7 MG, SINGLE
     Route: 031
  2. OZURDEX [Suspect]
     Active Substance: DEXAMETHASONE
     Indication: CYSTOID MACULAR OEDEMA
     Dosage: 0.7 MG, SINGLE
     Route: 031
  3. PENICILLIN G [Concomitant]
     Active Substance: PENICILLIN G
     Indication: INTRAOCULAR PRESSURE INCREASED
     Dosage: UNK
     Route: 042

REACTIONS (4)
  - Cystoid macular oedema [Recovered/Resolved]
  - Off label use [Unknown]
  - Vision blurred [Recovered/Resolved]
  - Intraocular pressure increased [Unknown]
